FAERS Safety Report 9056285 (Version 1)
Quarter: 2013Q1

REPORT INFORMATION
  Report Type: Spontaneous
  Country: KP (occurrence: KR)
  Receive Date: 20130205
  Receipt Date: 20130205
  Transmission Date: 20140127
  Serious: Yes (Other)
  Sender: FDA-Public Use
  Company Number: KP-ALEXION PHARMACEUTICALS INC.-A201201230

PATIENT
  Age: 36 None
  Sex: Female
  Weight: 51 kg

DRUGS (4)
  1. SOLIRIS 300MG [Suspect]
     Indication: PAROXYSMAL NOCTURNAL HAEMOGLOBINURIA
     Dosage: 900 MG UNK
     Route: 042
     Dates: start: 20091229, end: 20120607
  2. FOLIC ACID [Concomitant]
     Indication: ANAEMIA
     Dosage: 1 MG UNK
     Route: 048
     Dates: start: 20110317
  3. FERROUS SULFATE [Concomitant]
     Indication: ANAEMIA
     Dosage: 256 MG UNK
     Route: 048
     Dates: start: 20110317, end: 20120106
  4. SODIUM CHLORIDE INJECTION [Concomitant]
     Indication: MEDICATION DILUTION
     Dosage: 900 MG/150 ML UNK
     Route: 042
     Dates: start: 20091229, end: 20120607

REACTIONS (3)
  - Haemoglobin decreased [Recovering/Resolving]
  - Platelet count decreased [Recovered/Resolved]
  - Maternal exposure during pregnancy [Not Recovered/Not Resolved]
